FAERS Safety Report 13301376 (Version 1)
Quarter: 2017Q1

REPORT INFORMATION
  Report Type: Spontaneous
  Country: ES (occurrence: ES)
  Receive Date: 20170307
  Receipt Date: 20170307
  Transmission Date: 20170428
  Serious: Yes (Hospitalization)
  Sender: FDA-Public Use
  Company Number: ES-ROCHE-1901902

PATIENT
  Age: 82 Year
  Sex: Male

DRUGS (5)
  1. QUETIAPINA [Suspect]
     Active Substance: QUETIAPINE
     Indication: DEMENTIA
     Route: 048
     Dates: start: 2016
  2. RISPERDAL [Suspect]
     Active Substance: RISPERIDONE
     Indication: DEMENTIA
     Dosage: 1 MG/ ML
     Route: 048
     Dates: start: 2016
  3. RIVOTRIL [Suspect]
     Active Substance: CLONAZEPAM
     Indication: DEMENTIA
     Route: 048
     Dates: start: 2016
  4. DEPRAX (SPAIN) [Suspect]
     Active Substance: TRAZODONE HYDROCHLORIDE
     Indication: DEMENTIA
     Route: 048
     Dates: start: 2016
  5. ALPRAZOLAM. [Suspect]
     Active Substance: ALPRAZOLAM
     Indication: DEMENTIA
     Dosage: 1-0-1
     Route: 048
     Dates: start: 2016, end: 201702

REACTIONS (3)
  - Parkinsonism [Unknown]
  - Medication error [Unknown]
  - Sedation [Unknown]

NARRATIVE: CASE EVENT DATE: 201606
